FAERS Safety Report 22593133 (Version 5)
Quarter: 2023Q2

REPORT INFORMATION
  Report Type: Report from Study
  Country: US (occurrence: US)
  Receive Date: 20230613
  Receipt Date: 20230626
  Transmission Date: 20230721
  Serious: No
  Sender: FDA-Public Use
  Company Number: US-002147023-NVSC2023US132764

PATIENT
  Sex: Female
  Weight: 104.33 kg

DRUGS (11)
  1. TACROLIMUS [Suspect]
     Active Substance: TACROLIMUS
     Indication: Hidradenitis
     Dosage: UNK
     Route: 065
  2. MINOCYCLINE [Suspect]
     Active Substance: MINOCYCLINE HYDROCHLORIDE
     Indication: Hidradenitis
     Dosage: UNK
     Route: 065
  3. CLINDAMYCIN HYDROCHLORIDE [Suspect]
     Active Substance: CLINDAMYCIN HYDROCHLORIDE
     Indication: Hidradenitis
     Dosage: UNK
     Route: 065
  4. BACTRIM DS [Suspect]
     Active Substance: SULFAMETHOXAZOLE\TRIMETHOPRIM
     Indication: Hidradenitis
     Dosage: UNK
     Route: 065
  5. TRIMETHOPRIM [Suspect]
     Active Substance: TRIMETHOPRIM
     Indication: Hidradenitis
     Dosage: UNK
     Route: 065
  6. SPIRONOLACTONE [Suspect]
     Active Substance: SPIRONOLACTONE
     Indication: Hidradenitis
     Dosage: UNK
     Route: 065
  7. DOXYCYCLINE HYCLATE [Suspect]
     Active Substance: DOXYCYCLINE HYCLATE
     Indication: Hidradenitis
     Dosage: UNK
     Route: 065
  8. DAPSONE [Suspect]
     Active Substance: DAPSONE
     Indication: Hidradenitis
     Dosage: UNK
     Route: 065
  9. TRETINOIN [Suspect]
     Active Substance: TRETINOIN
     Indication: Hidradenitis
     Dosage: UNK
     Route: 065
  10. CITALOPRAM [Suspect]
     Active Substance: CITALOPRAM HYDROBROMIDE
     Indication: Hidradenitis
     Dosage: UNK
     Route: 065
  11. SULFAMETHOXAZOLE [Suspect]
     Active Substance: SULFAMETHOXAZOLE
     Indication: Hidradenitis
     Dosage: UNK
     Route: 065

REACTIONS (13)
  - Tinea versicolour [Unknown]
  - Skin hypopigmentation [Unknown]
  - Skin exfoliation [Unknown]
  - Inflammation [Unknown]
  - Rash [Unknown]
  - Hidradenitis [Unknown]
  - Skin irritation [Unknown]
  - Pain [Unknown]
  - Erythema [Unknown]
  - Discharge [Unknown]
  - Condition aggravated [Unknown]
  - Product use in unapproved indication [Unknown]
  - Drug ineffective [Unknown]
